FAERS Safety Report 16434799 (Version 1)
Quarter: 2019Q2

REPORT INFORMATION
  Report Type: Spontaneous
  Country: US (occurrence: US)
  Receive Date: 20190614
  Receipt Date: 20190614
  Transmission Date: 20190711
  Serious: Yes (Other)
  Sender: FDA-Public Use
  Company Number: US-JNJFOC-JAUSA6777

PATIENT
  Age: 36 Year
  Sex: Female
  Weight: 54.43 kg

DRUGS (13)
  1. INAPSINE [Suspect]
     Active Substance: DROPERIDOL
     Indication: ANAESTHESIA
     Route: 041
     Dates: start: 19920416, end: 19920416
  2. HORMONES [Concomitant]
     Active Substance: UNSPECIFIED INGREDIENT
     Route: 065
  3. ALFENTA [Suspect]
     Active Substance: ALFENTANIL HYDROCHLORIDE
     Indication: ANAESTHESIA
     Route: 041
  4. XYLOCAINE [Concomitant]
     Active Substance: LIDOCAINE HYDROCHLORIDE
     Route: 065
  5. SUBLIMAZE [Suspect]
     Active Substance: FENTANYL CITRATE
     Indication: PRODUCT USED FOR UNKNOWN INDICATION
     Route: 041
  6. PROPOFOL. [Suspect]
     Active Substance: PROPOFOL
     Indication: PRODUCT USED FOR UNKNOWN INDICATION
     Route: 065
  7. ATRACURIUM [Suspect]
     Active Substance: ATRACURIUM
     Indication: PRODUCT USED FOR UNKNOWN INDICATION
     Route: 041
  8. OXYGEN. [Concomitant]
     Active Substance: OXYGEN
     Route: 065
  9. FORANE [Concomitant]
     Active Substance: ISOFLURANE
     Route: 065
  10. MIDAZOLAM [Suspect]
     Active Substance: MIDAZOLAM HYDROCHLORIDE
     Indication: PRODUCT USED FOR UNKNOWN INDICATION
     Route: 065
  11. NEOSTIGMINE. [Concomitant]
     Active Substance: NEOSTIGMINE METHYLSULFATE
     Route: 065
  12. REGLAN [Concomitant]
     Active Substance: METOCLOPRAMIDE HYDROCHLORIDE
     Route: 065
  13. ROBINUL [Concomitant]
     Active Substance: GLYCOPYRROLATE
     Route: 065

REACTIONS (1)
  - Apnoea [Unknown]

NARRATIVE: CASE EVENT DATE: 19920416
